FAERS Safety Report 17516957 (Version 4)
Quarter: 2020Q2

REPORT INFORMATION
  Report Type: Report from Study
  Country: None (occurrence: CH)
  Receive Date: 20200309
  Receipt Date: 20200402
  Transmission Date: 20200713
  Serious: Yes (Death, Other)
  Sender: FDA-Public Use
  Company Number: CH-ABBVIE-20K-151-3304374-00

PATIENT
  Age: 73 Year
  Sex: Male

DRUGS (4)
  1. DUODOPA [Suspect]
     Active Substance: CARBIDOPA\LEVODOPA
     Dosage: MD: 1ML, CRD: 2.8ML/H, CRN: 2.6ML/H,ED: 2ML?24H THERAPY
     Route: 050
  2. DUODOPA [Suspect]
     Active Substance: CARBIDOPA\LEVODOPA
     Dosage: MD: 1ML, CRD: 2.8ML/H, CRN: 2.6ML/H,ED: 2ML?24H THERAPY
     Route: 050
     Dates: start: 20190219
  3. DUODOPA [Suspect]
     Active Substance: CARBIDOPA\LEVODOPA
     Dosage: MD: 3 ML, CRD: 2.8ML/H, CRN: 2.6ML/H,ED:2ML?24H THERAPY
     Route: 050
     Dates: start: 20171201, end: 20190219
  4. DUODOPA [Suspect]
     Active Substance: CARBIDOPA\LEVODOPA
     Indication: PARKINSON^S DISEASE
     Route: 050
     Dates: start: 20150618, end: 20171201

REACTIONS (10)
  - Hallucination [Unknown]
  - Tremor [Unknown]
  - Parkinson^s disease [Not Recovered/Not Resolved]
  - Dystonia [Unknown]
  - Device dislocation [Not Recovered/Not Resolved]
  - Fluid intake reduced [Not Recovered/Not Resolved]
  - Off label use [Not Recovered/Not Resolved]
  - Death [Fatal]
  - Hypophagia [Not Recovered/Not Resolved]
  - Malaise [Not Recovered/Not Resolved]

NARRATIVE: CASE EVENT DATE: 20200326
